FAERS Safety Report 21007499 (Version 2)
Quarter: 2022Q3

REPORT INFORMATION
  Report Type: Spontaneous
  Country: US (occurrence: US)
  Receive Date: 20220626
  Receipt Date: 20220805
  Transmission Date: 20221027
  Serious: Yes (Other)
  Sender: FDA-Public Use
  Company Number: US-JNJFOC-20220640664

PATIENT
  Age: 4 Decade
  Sex: Female

DRUGS (16)
  1. ELMIRON [Suspect]
     Active Substance: PENTOSAN POLYSULFATE SODIUM
     Indication: Cystitis interstitial
     Dosage: DAILY
     Route: 048
     Dates: end: 2020
  2. ELMIRON [Suspect]
     Active Substance: PENTOSAN POLYSULFATE SODIUM
     Dosage: DAILY FROM //2020
     Route: 048
     Dates: end: 202006
  3. OMEPRAZOLE [Concomitant]
     Active Substance: OMEPRAZOLE
     Indication: Dyspepsia
     Dates: start: 2002
  4. AMOXICILLIN [Concomitant]
     Active Substance: AMOXICILLIN
     Indication: Bacterial infection
     Dates: start: 200811, end: 202002
  5. BENZONATATE [Concomitant]
     Active Substance: BENZONATATE
     Indication: Cough
     Dates: start: 200812
  6. GAVILYTE G [Concomitant]
     Active Substance: POLYETHYLENE GLYCOL 3350\POTASSIUM CHLORIDE\SODIUM BICARBONATE\SODIUM CHLORIDE\SODIUM SULFATE
     Dates: start: 201308, end: 202003
  7. MUPIROCIN [Concomitant]
     Active Substance: MUPIROCIN
     Indication: Skin infection
     Dates: start: 201401, end: 202006
  8. DULOXETINE HYDROCHLORIDE [Concomitant]
     Active Substance: DULOXETINE HYDROCHLORIDE
     Indication: Depression
     Dates: start: 202003, end: 202007
  9. DULOXETINE HYDROCHLORIDE [Concomitant]
     Active Substance: DULOXETINE HYDROCHLORIDE
     Indication: Anxiety
  10. METHYLPREDNISOLONE [Concomitant]
     Active Substance: METHYLPREDNISOLONE
     Indication: Pneumonia
     Dates: start: 201411, end: 202008
  11. GABAPENTIN [Concomitant]
     Active Substance: GABAPENTIN
     Indication: Neuralgia
     Dates: start: 201301
  12. COLESTIPOL HYDROCHLORIDE [Concomitant]
     Active Substance: COLESTIPOL HYDROCHLORIDE
     Indication: Crohn^s disease
     Dates: start: 201710
  13. MESALAMINE [Concomitant]
     Active Substance: MESALAMINE
     Indication: Gastrointestinal inflammation
     Dates: start: 201812
  14. PRAMIPEXOLE [Concomitant]
     Active Substance: PRAMIPEXOLE
     Indication: Neuropathy peripheral
     Dates: start: 2020
  15. XANAX [Concomitant]
     Active Substance: ALPRAZOLAM
     Indication: Anxiety
     Dates: start: 1992
  16. TRAZODONE HCL [Concomitant]
     Active Substance: TRAZODONE HYDROCHLORIDE
     Indication: Sleep disorder therapy
     Dates: start: 201302

REACTIONS (5)
  - Retinal toxicity [Not Recovered/Not Resolved]
  - Dry age-related macular degeneration [Recovered/Resolved]
  - Cataract nuclear [Not Recovered/Not Resolved]
  - Retinal dystrophy [Not Recovered/Not Resolved]
  - Off label use [Unknown]

NARRATIVE: CASE EVENT DATE: 20070101
